FAERS Safety Report 7451161-1 (Version None)
Quarter: 2011Q2

REPORT INFORMATION
  Report Type: 
  Country: None (occurrence: None)
  Receive Date: 20110502
  Receipt Date: 20110419
  Transmission Date: 20111010
  Serious: Yes (Other)
  Sender: FDA-Public Use
  Company Number: PHHY2011US33377

PATIENT
  Sex: Male

DRUGS (4)
  1. LISINOPRIL [Concomitant]
     Dosage: 2.5 MG, UNK
  2. MIRAPEX [Concomitant]
     Dosage: 0.5 MG, UNK
  3. LIPITOR [Concomitant]
     Dosage: 400 MG, UNK
  4. STALEVO 100 [Suspect]
     Dosage: 100 MG, TID

REACTIONS (1)
  - MALIGNANT MELANOMA [None]
